FAERS Safety Report 13357173 (Version 2)
Quarter: 2017Q2

REPORT INFORMATION
  Report Type: Report from Study
  Country: None (occurrence: FR)
  Receive Date: 20170322
  Receipt Date: 20170518
  Transmission Date: 20170830
  Serious: Yes (Hospitalization, Other)
  Sender: FDA-Public Use
  Company Number: FR-ABBVIE-17P-056-1908460-00

PATIENT
  Sex: Female

DRUGS (3)
  1. HUMIRA [Suspect]
     Active Substance: ADALIMUMAB
     Route: 058
  2. HUMIRA [Suspect]
     Active Substance: ADALIMUMAB
     Indication: CROHN^S DISEASE
     Route: 058
  3. HUMIRA [Suspect]
     Active Substance: ADALIMUMAB
     Dosage: 14 DAYS FOLLOWING FIRST INJECTION
     Route: 058

REACTIONS (9)
  - Haematoma [Unknown]
  - Fall [Unknown]
  - Agitation [Unknown]
  - Restless legs syndrome [Unknown]
  - Sensory disturbance [Unknown]
  - Nervous system disorder [Unknown]
  - Sleep disorder [Unknown]
  - Mental disorder [Unknown]
  - Blood pressure increased [Unknown]
